FAERS Safety Report 5940614-0 (Version None)
Quarter: 2008Q4

REPORT INFORMATION
  Report Type: 
  Country: None (occurrence: None)
  Receive Date: 20081103
  Receipt Date: 20081103
  Transmission Date: 20090506
  Serious: Yes (Other)
  Sender: FDA-Public Use
  Company Number: None

PATIENT
  Age: 26 Year
  Sex: Female
  Weight: 88.4514 kg

DRUGS (1)
  1. DEXAMETHASONE [Suspect]

REACTIONS (22)
  - ABDOMINAL PAIN [None]
  - ABDOMINAL PAIN UPPER [None]
  - AGITATION [None]
  - ARTHRALGIA [None]
  - BONE PAIN [None]
  - CONTUSION [None]
  - COUGH [None]
  - DRUG HYPERSENSITIVITY [None]
  - DYSPNOEA [None]
  - EYE DISCHARGE [None]
  - EYE PAIN [None]
  - HAEMORRHAGE [None]
  - HEART RATE DECREASED [None]
  - HEART RATE INCREASED [None]
  - HEART RATE IRREGULAR [None]
  - IMPAIRED HEALING [None]
  - MUSCULAR WEAKNESS [None]
  - MYALGIA [None]
  - OROPHARYNGEAL PAIN [None]
  - PALPITATIONS [None]
  - PARAESTHESIA [None]
  - TENDON PAIN [None]
